FAERS Safety Report 18792050 (Version 21)
Quarter: 2022Q4

REPORT INFORMATION
  Report Type: Spontaneous
  Country: CA (occurrence: CA)
  Receive Date: 20210127
  Receipt Date: 20221221
  Transmission Date: 20230112
  Serious: Yes (Other)
  Sender: FDA-Public Use
  Company Number: CA-CELLTRION INC.-2020CA021201

PATIENT

DRUGS (20)
  1. INFLECTRA [Suspect]
     Active Substance: INFLIXIMAB-DYYB
     Indication: Colitis ulcerative
     Dosage: 500 MG, EVERY 6 WEEKS
     Route: 042
     Dates: start: 20200415, end: 2020
  2. INFLECTRA [Suspect]
     Active Substance: INFLIXIMAB-DYYB
     Dosage: 500 MG, EVERY 6 WEEKS
     Route: 042
     Dates: start: 20200415, end: 20210325
  3. INFLECTRA [Suspect]
     Active Substance: INFLIXIMAB-DYYB
     Dosage: 500 MG, EVERY 6 WEEKS
     Route: 042
     Dates: start: 20201126, end: 20210111
  4. INFLECTRA [Suspect]
     Active Substance: INFLIXIMAB-DYYB
     Dosage: 500 MG, EVERY 6 WEEKS
     Route: 042
     Dates: start: 20210210
  5. INFLECTRA [Suspect]
     Active Substance: INFLIXIMAB-DYYB
     Dosage: 500 MG, EVERY 6 WEEKS
     Route: 042
     Dates: start: 20210325
  6. INFLECTRA [Suspect]
     Active Substance: INFLIXIMAB-DYYB
     Dosage: 500 MG INDUCTION: 0,2 6 WEEKS, MAINTENANCE: Q 4 WEEKS
     Route: 042
     Dates: start: 20210421
  7. INFLECTRA [Suspect]
     Active Substance: INFLIXIMAB-DYYB
     Dosage: 500 MG INDUCTION: 0,2 6 WEEKS, MAINTENANCE: Q 4 WEEKS
     Route: 042
     Dates: start: 20210728
  8. INFLECTRA [Suspect]
     Active Substance: INFLIXIMAB-DYYB
     Dosage: 500 MG INDUCTION: 0,2 6 WEEKS, MAINTENANCE: Q 4 WEEKS
     Route: 042
     Dates: start: 20210908
  9. INFLECTRA [Suspect]
     Active Substance: INFLIXIMAB-DYYB
     Dosage: 500 MG INDUCTION: 0,2 6 WEEKS, MAINTENANCE: Q 4 WEEKS
     Route: 042
     Dates: start: 20211006
  10. INFLECTRA [Suspect]
     Active Substance: INFLIXIMAB-DYYB
     Dosage: 500 MG  INDUCTION: 0,2 6 WEEKS, MAINTENANCE: Q 4 WEEKS
     Route: 042
     Dates: start: 20211105
  11. INFLECTRA [Suspect]
     Active Substance: INFLIXIMAB-DYYB
     Dosage: 500 MG  INDUCTION: 0,2 6 WEEKS, MAINTENANCE: Q 4 WEEKS
     Route: 042
     Dates: start: 20211201
  12. INFLECTRA [Suspect]
     Active Substance: INFLIXIMAB-DYYB
     Dosage: 500 MG  INDUCTION: 0,2 6 WEEKS, MAINTENANCE: Q 4 WEEKS
     Route: 042
     Dates: start: 20220105
  13. INFLECTRA [Suspect]
     Active Substance: INFLIXIMAB-DYYB
     Dosage: 500 MG  INDUCTION: 0,2 6 WEEKS, MAINTENANCE: Q 4 WEEKS
     Route: 042
     Dates: start: 20220128
  14. INFLECTRA [Suspect]
     Active Substance: INFLIXIMAB-DYYB
     Dosage: 500 MG  INDUCTION: 0,2 6 WEEKS, MAINTENANCE: Q 4 WEEKS
     Route: 042
     Dates: start: 20220307
  15. INFLECTRA [Suspect]
     Active Substance: INFLIXIMAB-DYYB
     Dosage: 500 MG  INDUCTION: 0,2 6 WEEKS, MAINTENANCE: Q 4 WEEKS
     Route: 042
     Dates: start: 20220502
  16. INFLECTRA [Suspect]
     Active Substance: INFLIXIMAB-DYYB
     Dosage: 500 MG  INDUCTION: 0,2 6 WEEKS, MAINTENANCE: Q 4 WEEKS
     Route: 042
     Dates: start: 20220530
  17. INFLECTRA [Suspect]
     Active Substance: INFLIXIMAB-DYYB
     Dosage: 500 MG  INDUCTION: 0,2 6 WEEKS, MAINTENANCE: Q 4 WEEKS
     Route: 042
     Dates: start: 20220721
  18. INFLECTRA [Suspect]
     Active Substance: INFLIXIMAB-DYYB
     Dosage: 500 MG  INDUCTION: 0,2 6 WEEKS, MAINTENANCE: Q 4 WEEKS
     Route: 042
     Dates: start: 20220822
  19. INFLECTRA [Suspect]
     Active Substance: INFLIXIMAB-DYYB
     Dosage: 500 MG  INDUCTION: 0,2 6 WEEKS, MAINTENANCE: Q 4 WEEKS
     Route: 042
     Dates: start: 20221015
  20. INFLECTRA [Suspect]
     Active Substance: INFLIXIMAB-DYYB
     Dosage: 500 MG  INDUCTION: 0,2 6 WEEKS, MAINTENANCE: Q 4 WEEKS
     Route: 042
     Dates: start: 20221212

REACTIONS (13)
  - COVID-19 [Not Recovered/Not Resolved]
  - Condition aggravated [Recovered/Resolved]
  - Inappropriate schedule of product administration [Unknown]
  - Intentional product use issue [Unknown]
  - Off label use [Unknown]
  - Off label use [Unknown]
  - Cough [Not Recovered/Not Resolved]
  - Nasal congestion [Not Recovered/Not Resolved]
  - Oropharyngeal pain [Not Recovered/Not Resolved]
  - Pyrexia [Unknown]
  - Weight fluctuation [Not Recovered/Not Resolved]
  - Weight increased [Unknown]
  - Malaise [Recovering/Resolving]

NARRATIVE: CASE EVENT DATE: 20200415
